FAERS Safety Report 7152890-X (Version None)
Quarter: 2010Q4

REPORT INFORMATION
  Report Type: 
  Country: None (occurrence: None)
  Receive Date: 20101130
  Receipt Date: 20101122
  Transmission Date: 20110411
  Serious: Yes (Other)
  Sender: FDA-Public Use
  Company Number: 20109210

PATIENT
  Sex: Female

DRUGS (1)
  1. LIORESAL [Suspect]
     Indication: MUSCLE SPASTICITY
     Dosage: 718.4 MCG, DAILY, INTRATHECAL
     Route: 037

REACTIONS (4)
  - HYPOTONIA [None]
  - PRURITUS [None]
  - SEROMA [None]
  - WITHDRAWAL SYNDROME [None]
